FAERS Safety Report 5902025-3 (Version None)
Quarter: 2008Q3

REPORT INFORMATION
  Report Type: 
  Country: None (occurrence: None)
  Receive Date: 20080929
  Receipt Date: 20080919
  Transmission Date: 20090109
  Serious: Yes (Hospitalization)
  Sender: FDA-Public Use
  Company Number: US-BAXTER-2008BH009955

PATIENT
  Age: 68 Year
  Sex: Female

DRUGS (3)
  1. DIANEAL [Suspect]
     Indication: PERITONEAL DIALYSIS
     Dosage: DOSE UNIT:UNKNOWN
     Route: 033
     Dates: start: 20080614
  2. DIANEAL [Suspect]
     Indication: PERITONEAL DIALYSIS
     Dosage: DOSE UNIT:UNKNOWN
     Route: 033
     Dates: start: 20080614
  3. UNSPECIFIED PAIN MEDICATON [Suspect]
     Indication: PAIN IN EXTREMITY
     Dosage: DOSE UNIT:UNKNOWN
     Dates: start: 20080901

REACTIONS (2)
  - CONSTIPATION [None]
  - PAIN IN EXTREMITY [None]
